FAERS Safety Report 9140445 (Version 3)
Quarter: 2013Q3

REPORT INFORMATION
  Report Type: Report from Study
  Country: DE (occurrence: DE)
  Receive Date: 20130305
  Receipt Date: 20130805
  Transmission Date: 20140515
  Serious: Yes (Hospitalization)
  Sender: FDA-Public Use
  Company Number: DE-ELI_LILLY_AND_COMPANY-DE200609001660

PATIENT
  Sex: Female
  Weight: 96 kg

DRUGS (4)
  1. GEMCITABINE HYDROCHLORIDE [Suspect]
     Indication: BREAST CANCER
     Dosage: 1860 MG, UNKNOWN
     Route: 042
     Dates: start: 20060831, end: 20060831
  2. DOCETAXEL [Suspect]
     Indication: BREAST CANCER
     Dosage: 140 MG, UNKNOWN
     Route: 042
     Dates: start: 20060831
  3. DEXAMETHASONE [Concomitant]
     Indication: ANTIEMETIC SUPPORTIVE CARE
     Dosage: 8 MG, UNK
     Route: 042
     Dates: start: 20060831, end: 20060831
  4. REMID [Concomitant]
     Dosage: 300 MG, QD

REACTIONS (4)
  - Febrile neutropenia [Recovered/Resolved]
  - Device related infection [Recovered/Resolved with Sequelae]
  - Pneumonia [Recovered/Resolved with Sequelae]
  - Diabetes mellitus [Recovered/Resolved with Sequelae]
